FAERS Safety Report 25107033 (Version 1)
Quarter: 2025Q1

REPORT INFORMATION
  Report Type: Spontaneous
  Country: CN (occurrence: CN)
  Receive Date: 20250321
  Receipt Date: 20250321
  Transmission Date: 20250409
  Serious: Yes (Life-Threatening)
  Sender: SANOFI AVENTIS
  Company Number: CN-SA-2025SA080385

PATIENT
  Age: 63 Year
  Sex: Male
  Weight: 72 kg

DRUGS (2)
  1. CLOPIDOGREL BISULFATE [Suspect]
     Active Substance: CLOPIDOGREL BISULFATE
     Indication: Brain stem infarction
     Dosage: 75 MG, QD
     Route: 048
     Dates: start: 20250308, end: 20250309
  2. ASPIRIN [Suspect]
     Active Substance: ASPIRIN
     Indication: Brain stem infarction
     Dosage: 100 MG, QD
     Route: 048
     Dates: start: 20250308, end: 20250309

REACTIONS (1)
  - Coagulation test abnormal [Recovering/Resolving]

NARRATIVE: CASE EVENT DATE: 20250309
